FAERS Safety Report 13029531 (Version 10)
Quarter: 2017Q3

REPORT INFORMATION
  Report Type: Spontaneous
  Country: US (occurrence: US)
  Receive Date: 20161215
  Receipt Date: 20170911
  Transmission Date: 20171127
  Serious: Yes (Other)
  Sender: FDA-Public Use
  Company Number: US-BEH-2016076092

PATIENT
  Sex: Female

DRUGS (12)
  1. BERINERT [Suspect]
     Active Substance: HUMAN C1-ESTERASE INHIBITOR
     Indication: PROPHYLAXIS
     Dosage: 2-3 DOSES DAILY
     Route: 065
  2. FIRAZYR [Suspect]
     Active Substance: ICATIBANT ACETATE
     Dosage: 1-2 DAILY
     Route: 065
  3. BERINERT [Suspect]
     Active Substance: HUMAN C1-ESTERASE INHIBITOR
     Indication: HEREDITARY ANGIOEDEMA
     Dosage: 2000 IU, QOD
     Route: 042
     Dates: start: 20120424
  4. FIRAZYR [Suspect]
     Active Substance: ICATIBANT ACETATE
     Indication: HEREDITARY ANGIOEDEMA
     Dosage: UNK, QOD
     Route: 065
  5. FIRAZYR [Suspect]
     Active Substance: ICATIBANT ACETATE
     Dosage: ONE DOSE
     Route: 065
  6. FIRAZYR [Suspect]
     Active Substance: ICATIBANT ACETATE
     Dosage: ONE DOSE
     Route: 065
  7. BERINERT [Suspect]
     Active Substance: HUMAN C1-ESTERASE INHIBITOR
     Indication: HEREDITARY ANGIOEDEMA
     Dosage: 1700 IU, QOD
     Route: 042
     Dates: start: 201611
  8. BERINERT [Suspect]
     Active Substance: HUMAN C1-ESTERASE INHIBITOR
     Dosage: 2000 IU, QOD
     Route: 042
     Dates: start: 201611
  9. BERINERT [Suspect]
     Active Substance: HUMAN C1-ESTERASE INHIBITOR
     Dosage: 2000 IU, EVERY 2 DAYS
     Route: 042
     Dates: start: 20160222
  10. BERINERT [Suspect]
     Active Substance: HUMAN C1-ESTERASE INHIBITOR
     Dosage: 2000 IU, EVERY 24 TO 48 HOURS
     Route: 042
     Dates: start: 20161107
  11. FIRAZYR [Suspect]
     Active Substance: ICATIBANT ACETATE
     Dosage: 2-3XDAY
     Route: 065
  12. FIRAZYR [Suspect]
     Active Substance: ICATIBANT ACETATE
     Dosage: ONE DOSE
     Route: 065

REACTIONS (8)
  - Swelling [Recovered/Resolved]
  - Pharyngeal oedema [Recovered/Resolved]
  - Bladder dilatation [Recovered/Resolved]
  - Hereditary angioedema [Recovered/Resolved]
  - Vulvovaginal swelling [Recovered/Resolved]
  - Abdominal distension [Recovered/Resolved]
  - Genital swelling [Recovered/Resolved]
  - Swelling face [Recovered/Resolved]
